FAERS Safety Report 8164059-0 (Version None)
Quarter: 2012Q1

REPORT INFORMATION
  Report Type: 
  Country: None (occurrence: None)
  Receive Date: 20120224
  Receipt Date: 20120213
  Transmission Date: 20120608
  Serious: Yes (Hospitalization, Other)
  Sender: FDA-Public Use
  Company Number: PHHY2010US29637

PATIENT
  Sex: Female
  Weight: 89.8 kg

DRUGS (21)
  1. GLEEVEC [Suspect]
     Dosage: 300 MG, DAILY
     Route: 048
     Dates: start: 20060914
  2. ATENOLOL [Concomitant]
     Dosage: 50 MG, QD
     Route: 048
  3. DIGOXIN [Concomitant]
     Dosage: 1 DF, QD
     Route: 048
  4. BENTYL [Concomitant]
     Dosage: 1 DF, QID
     Route: 048
  5. CYCLOBENZAPRINE HCL [Concomitant]
     Dosage: 10 MG, PRN
     Route: 048
  6. FUROSEMIDE [Concomitant]
     Dosage: 20 MG, BID
     Route: 048
  7. LORAZEPAM [Concomitant]
     Dosage: 12 DF, (EVERY 3-4 HOURS, PRN)
     Route: 048
  8. FLUCONAZOLE [Concomitant]
     Dosage: 2 DF, DAILY
     Route: 048
  9. GLEEVEC [Suspect]
     Dosage: 200 MG, DAILY
     Route: 048
     Dates: start: 20100922
  10. GLEEVEC [Suspect]
     Dosage: 300 MG, DAILY
     Route: 048
     Dates: start: 20100901
  11. ALBUTEROL SULFATE [Concomitant]
     Dosage: 90 MCG, 2 PUFFS EVERY 4-6 HOURS AS NEEDED
  12. ESTROGENS CONJUGATED [Concomitant]
     Dosage: 1 DF, QD
     Route: 048
  13. PRILOSEC [Concomitant]
     Dosage: 1 DF, UNK
     Route: 048
  14. ASPIRIN [Concomitant]
     Dosage: 81 MG, QD
     Route: 048
  15. ACETAMINOPHEN [Concomitant]
     Dosage: 2 DF, QD
     Route: 048
  16. SYNTHROID [Concomitant]
     Dosage: 1 DF, DAILY
     Route: 048
  17. GLEEVEC [Suspect]
     Dosage: 300 MG, DAILY
     Route: 048
     Dates: start: 20110418
  18. LEVOTHYROXINE SODIUM [Concomitant]
     Dosage: 1.5 DF, UNK
     Route: 048
  19. GLEEVEC [Suspect]
     Indication: CHRONIC MYELOID LEUKAEMIA
     Dosage: 400 MG, DAILY
     Route: 048
  20. GLEEVEC [Suspect]
     Dosage: 300 MG, DAILY
     Route: 048
     Dates: start: 20090527
  21. LORTAB [Concomitant]
     Indication: PAIN
     Dosage: 5-500 MG AS NEEDED
     Route: 048

REACTIONS (79)
  - BONE PAIN [None]
  - PALPITATIONS [None]
  - DYSURIA [None]
  - PARAESTHESIA [None]
  - NODULE [None]
  - OEDEMA [None]
  - FLUID RETENTION [None]
  - ABDOMINAL PAIN [None]
  - NAUSEA [None]
  - ALOPECIA [None]
  - CHEST PAIN [None]
  - HAEMOPTYSIS [None]
  - HAEMATURIA [None]
  - MUSCULOSKELETAL STIFFNESS [None]
  - INSOMNIA [None]
  - ANGER [None]
  - TEMPERATURE INTOLERANCE [None]
  - HOT FLUSH [None]
  - CONTUSION [None]
  - COLITIS [None]
  - DYSPNOEA [None]
  - GASTROOESOPHAGEAL REFLUX DISEASE [None]
  - OEDEMA PERIPHERAL [None]
  - PYREXIA [None]
  - VISUAL IMPAIRMENT [None]
  - STOMATITIS [None]
  - COUGH [None]
  - DYSPHAGIA [None]
  - SYNCOPE [None]
  - ANXIETY [None]
  - LYMPHOEDEMA [None]
  - PAIN [None]
  - DIARRHOEA [None]
  - HYPERHIDROSIS [None]
  - CHILLS [None]
  - LACRIMATION INCREASED [None]
  - DRY SKIN [None]
  - BREAST PAIN [None]
  - BLOOD THYROID STIMULATING HORMONE INCREASED [None]
  - RASH [None]
  - FEELING ABNORMAL [None]
  - MALAISE [None]
  - DECREASED APPETITE [None]
  - EPISTAXIS [None]
  - CONSTIPATION [None]
  - GAIT DISTURBANCE [None]
  - PURPURA [None]
  - WHEEZING [None]
  - BREAST DISCHARGE [None]
  - COCCIDIOIDOMYCOSIS [None]
  - VOMITING [None]
  - FATIGUE [None]
  - WEIGHT DECREASED [None]
  - CONJUNCTIVITIS [None]
  - DEPRESSION [None]
  - PRURITUS [None]
  - ERYTHEMA [None]
  - PYELONEPHRITIS [None]
  - MUSCLE SPASMS [None]
  - SWELLING [None]
  - HAEMATOCHEZIA [None]
  - DRY MOUTH [None]
  - NOCTURIA [None]
  - INCONTINENCE [None]
  - VERTIGO [None]
  - BREAST MASS [None]
  - EYELID OEDEMA [None]
  - WEIGHT INCREASED [None]
  - MYALGIA [None]
  - PHOTOPHOBIA [None]
  - SINUSITIS [None]
  - PLEURISY [None]
  - URINARY HESITATION [None]
  - MICTURITION URGENCY [None]
  - POLLAKIURIA [None]
  - HYPOAESTHESIA [None]
  - HEADACHE [None]
  - MASS [None]
  - SKIN DEPIGMENTATION [None]
